FAERS Safety Report 16726528 (Version 1)
Quarter: 2019Q3

REPORT INFORMATION
  Report Type: Spontaneous
  Country: JP (occurrence: JP)
  Receive Date: 20190821
  Receipt Date: 20190821
  Transmission Date: 20191005
  Serious: Yes (Other)
  Sender: FDA-Public Use
  Company Number: JP-B.I. PHARMACEUTICALS,INC./RIDGEFIELD-2019-BI-033826

PATIENT
  Age: 80 Year
  Sex: Female

DRUGS (1)
  1. PERSANTIN [Suspect]
     Active Substance: DIPYRIDAMOLE
     Indication: ANGINA PECTORIS
     Route: 065

REACTIONS (1)
  - Diverticulum intestinal haemorrhagic [Unknown]
